FAERS Safety Report 14653247 (Version 1)
Quarter: 2018Q1

REPORT INFORMATION
  Report Type: Spontaneous
  Country: DK (occurrence: DK)
  Receive Date: 20180319
  Receipt Date: 20180319
  Transmission Date: 20180509
  Serious: Yes (Hospitalization)
  Sender: FDA-Public Use
  Company Number: DK-MERCK KGAA-2044009

PATIENT
  Age: 35 Year
  Sex: Female
  Weight: 70 kg

DRUGS (1)
  1. NOVOTHYROX [Suspect]
     Active Substance: LEVOTHYROXINE SODIUM
     Indication: HYPOTHYROIDISM
     Route: 048
     Dates: start: 20170304

REACTIONS (5)
  - Derealisation [Recovering/Resolving]
  - Violence-related symptom [Recovering/Resolving]
  - Hallucination [Recovering/Resolving]
  - Nightmare [Recovering/Resolving]
  - Paranoia [Recovering/Resolving]

NARRATIVE: CASE EVENT DATE: 20170505
